FAERS Safety Report 7644036-6 (Version None)
Quarter: 2011Q3

REPORT INFORMATION
  Report Type: 
  Country: None (occurrence: None)
  Receive Date: 20110729
  Receipt Date: 20110725
  Transmission Date: 20111222
  Serious: Yes (Other)
  Sender: FDA-Public Use
  Company Number: FR-BRISTOL-MYERS SQUIBB COMPANY-15928682

PATIENT
  Age: 47 Year
  Sex: Female

DRUGS (5)
  1. NORVIR [Suspect]
     Indication: HIV INFECTION
     Route: 048
     Dates: start: 20050224
  2. VIREAD [Concomitant]
     Indication: HIV INFECTION
     Route: 048
     Dates: end: 20060825
  3. TRUVADA [Suspect]
     Indication: HIV INFECTION
     Dosage: TRUVADA  ONE INTAKE DAILY
     Dates: start: 20060825
  4. EPIVER [Concomitant]
     Indication: HIV INFECTION
     Dates: start: 20050224, end: 20060625
  5. REYATAZ [Suspect]
     Indication: HIV INFECTION
     Dosage: REYATAZ 150 MG, CAPSULE TWO INTAKES DAILY
     Route: 048
     Dates: start: 20050224

REACTIONS (1)
  - RENAL COLIC [None]
